FAERS Safety Report 21821165 (Version 3)
Quarter: 2023Q2

REPORT INFORMATION
  Report Type: Spontaneous
  Country: CN (occurrence: CN)
  Receive Date: 20230105
  Receipt Date: 20230502
  Transmission Date: 20230721
  Serious: Yes (Other)
  Sender: FDA-Public Use
  Company Number: CN-SUN PHARMACEUTICAL INDUSTRIES LTD-2022R1-371711

PATIENT
  Age: 52 Year
  Sex: Male

DRUGS (2)
  1. CISPLATIN [Suspect]
     Active Substance: CISPLATIN
     Indication: Chemotherapy
     Dosage: 40 MILLIGRAM/SQ. METER
     Route: 065
     Dates: start: 201805
  2. DOCETAXEL [Suspect]
     Active Substance: DOCETAXEL
     Indication: Chemotherapy
     Dosage: 120 MILLIGRAM/SQ. METER
     Route: 065
     Dates: start: 201805

REACTIONS (2)
  - Disease recurrence [Unknown]
  - Dysuria [Recovered/Resolved]
